FAERS Safety Report 4782908-0 (Version None)
Quarter: 2005Q3

REPORT INFORMATION
  Report Type: 
  Country: None (occurrence: None)
  Receive Date: 20050929
  Receipt Date: 20050726
  Transmission Date: 20060218
  Serious: Yes (Hospitalization)
  Sender: FDA-Public Use
  Company Number: 200512182JP

PATIENT
  Age: 51 Year
  Sex: Female
  Weight: 43 kg

DRUGS (3)
  1. ARAVA [Suspect]
     Indication: RHEUMATOID ARTHRITIS
     Route: 048
     Dates: start: 20050711, end: 20050722
  2. RHEUMATREX [Concomitant]
     Indication: RHEUMATOID ARTHRITIS
  3. PREDNINE [Concomitant]
     Indication: RHEUMATOID ARTHRITIS
     Route: 048

REACTIONS (4)
  - HEPATIC FUNCTION ABNORMAL [None]
  - PHOTOSENSITIVITY REACTION [None]
  - STEVENS-JOHNSON SYNDROME [None]
  - TOXIC EPIDERMAL NECROLYSIS [None]
